FAERS Safety Report 5149198-0 (Version None)
Quarter: 2006Q4

REPORT INFORMATION
  Report Type: 
  Country: None (occurrence: None)
  Receive Date: 20061113
  Receipt Date: 20060912
  Transmission Date: 20070319
  Serious: No
  Sender: FDA-Public Use
  Company Number: US-GLAXOSMITHKLINE-A0619929A

PATIENT
  Age: 54 Year
  Sex: Male

DRUGS (8)
  1. COREG [Suspect]
     Dosage: 6.25MG TWICE PER DAY
     Route: 048
  2. HUMALOG [Concomitant]
  3. LANTUS [Concomitant]
  4. HYDRALAZINE HCL [Concomitant]
  5. COUMADIN [Concomitant]
  6. DIGITALIS TAB [Concomitant]
  7. ISOSORBIDE [Concomitant]
  8. HYTRIN [Concomitant]

REACTIONS (6)
  - ASTHENIA [None]
  - BLOOD GLUCOSE INCREASED [None]
  - CHEST PAIN [None]
  - FATIGUE [None]
  - HYPERSOMNIA [None]
  - SOMNOLENCE [None]
